FAERS Safety Report 25124655 (Version 1)
Quarter: 2025Q1

REPORT INFORMATION
  Report Type: Spontaneous
  Country: CN (occurrence: CN)
  Receive Date: 20250326
  Receipt Date: 20250326
  Transmission Date: 20250408
  Serious: Yes (Life-Threatening)
  Sender: FRESENIUS KABI
  Company Number: CN-FreseniusKabi-FK202504478

PATIENT
  Age: 76 Year
  Sex: Male
  Weight: 65 kg

DRUGS (3)
  1. EGG PHOSPHOLIPIDS\GLYCERIN\MEDIUM-CHAIN TRIGLYCERIDES\SOYBEAN OIL [Suspect]
     Active Substance: EGG PHOSPHOLIPIDS\GLYCERIN\MEDIUM-CHAIN TRIGLYCERIDES\SOYBEAN OIL
     Indication: Malnutrition
     Dosage: FOA-INJECTION
     Route: 041
     Dates: start: 20250310, end: 20250310
  2. DEXTROSE\ELECTROLYTES NOS [Suspect]
     Active Substance: DEXTROSE\ELECTROLYTES NOS
     Indication: Malnutrition
     Dosage: FOA-INJECTION
     Route: 041
     Dates: start: 20250310, end: 20250310
  3. AMINO ACIDS, SOURCE UNSPECIFIED [Concomitant]
     Active Substance: AMINO ACIDS, SOURCE UNSPECIFIED
     Indication: Malnutrition
     Dosage: FOA-INJECTION
     Route: 041
     Dates: start: 20250310, end: 20250310

REACTIONS (4)
  - Chills [Recovering/Resolving]
  - Wheezing [Recovering/Resolving]
  - Pallor [Recovering/Resolving]
  - Pyrexia [Recovering/Resolving]

NARRATIVE: CASE EVENT DATE: 20250310
